FAERS Safety Report 6036058-6 (Version None)
Quarter: 2009Q1

REPORT INFORMATION
  Report Type: 
  Country: None (occurrence: None)
  Receive Date: 20090113
  Receipt Date: 20090106
  Transmission Date: 20090719
  Serious: Yes (Hospitalization)
  Sender: FDA-Public Use
  Company Number: ES-JNJCH-2008057042

PATIENT
  Age: 20 Month
  Sex: Female

DRUGS (3)
  1. ASPIRIN [Suspect]
     Indication: PYREXIA
     Dosage: TEXT:TOTAL DOSE OF 125 MG
     Route: 048
  2. PHENYLPROPANOLAMINE HCL [Suspect]
     Indication: PYREXIA
     Dosage: TEXT:UNSPECIFIED
     Route: 065
  3. PROPYPHENAZONE [Suspect]
     Indication: PYREXIA
     Dosage: TEXT:UNSPECIFIED
     Route: 065

REACTIONS (7)
  - ENCEPHALOPATHY [None]
  - EPILEPSY [None]
  - INFANTILE SPASMS [None]
  - LENNOX-GASTAUT SYNDROME [None]
  - QUADRIPLEGIA [None]
  - REYE'S SYNDROME [None]
  - WRONG DRUG ADMINISTERED [None]
